FAERS Safety Report 23704289 (Version 1)
Quarter: 2024Q2

REPORT INFORMATION
  Report Type: Report from Study
  Country: US (occurrence: US)
  Receive Date: 20240404
  Receipt Date: 20240404
  Transmission Date: 20240715
  Serious: No
  Sender: FDA-Public Use
  Company Number: US-AstraZeneca-CH-00595218A

PATIENT
  Sex: Female
  Weight: 20 kg

DRUGS (1)
  1. ULTOMIRIS [Suspect]
     Active Substance: RAVULIZUMAB-CWVZ
     Indication: Atypical haemolytic uraemic syndrome
     Dosage: UNK, EVERY 2 MONTHS
     Route: 065

REACTIONS (5)
  - Pain [Unknown]
  - Blood creatine increased [Unknown]
  - Renal disorder [Unknown]
  - Cell death [Unknown]
  - Pruritus [Unknown]
